FAERS Safety Report 19957389 (Version 3)
Quarter: 2022Q1

REPORT INFORMATION
  Report Type: Other
  Country: DE (occurrence: None)
  Receive Date: 20211014
  Receipt Date: 20220222
  Transmission Date: 20220423
  Serious: No
  Sender: FDA-Public Use
  Company Number: DE-ROCHE-2932681

PATIENT
  Age: 46 Year
  Sex: Female

DRUGS (4)
  1. OCREVUS [Suspect]
     Active Substance: OCRELIZUMAB
     Indication: Relapsing-remitting multiple sclerosis
     Dosage: 600MG IN 211 DAYS, SECOND INITIAL DOSE ON 06/JUL/2021
     Route: 042
     Dates: start: 20210622
  2. LEMTRADA [Suspect]
     Active Substance: ALEMTUZUMAB
     Indication: Product used for unknown indication
     Route: 065
  3. ESCITALOPRAM [Concomitant]
     Active Substance: ESCITALOPRAM OXALATE
     Dates: end: 20211001
  4. COMIRNATY [Concomitant]
     Active Substance: TOZINAMERAN

REACTIONS (6)
  - Breast discomfort [Recovered/Resolved]
  - Nipple pain [Recovered/Resolved]
  - Vaginal haemorrhage [Recovered/Resolved]
  - Oral candidiasis [Unknown]
  - Vulvovaginal mycotic infection [Unknown]
  - Blood thyroid stimulating hormone increased [Not Recovered/Not Resolved]

NARRATIVE: CASE EVENT DATE: 20210701
